FAERS Safety Report 25014332 (Version 2)
Quarter: 2025Q1

REPORT INFORMATION
  Report Type: Spontaneous
  Country: NO (occurrence: NO)
  Receive Date: 20250226
  Receipt Date: 20250320
  Transmission Date: 20250409
  Serious: Yes (Other)
  Sender: AMGEN
  Company Number: NO-AMGEN-NORSP2025013590

PATIENT
  Sex: Female

DRUGS (2)
  1. ARANESP [Suspect]
     Active Substance: DARBEPOETIN ALFA
     Indication: Anaemia
     Dosage: 150 MICROGRAM, QWK
     Route: 058
     Dates: start: 20241216
  2. ARANESP [Suspect]
     Active Substance: DARBEPOETIN ALFA
     Route: 058

REACTIONS (3)
  - Plasma cell myeloma [Unknown]
  - Product packaging issue [Unknown]
  - Therapy interrupted [Unknown]

NARRATIVE: CASE EVENT DATE: 20241201
